FAERS Safety Report 8319041-7 (Version None)
Quarter: 2012Q2

REPORT INFORMATION
  Report Type: 
  Country: None (occurrence: None)
  Receive Date: 20120427
  Receipt Date: 20120419
  Transmission Date: 20120825
  Serious: Yes (Death, Hospitalization, Other)
  Sender: FDA-Public Use
  Company Number: US-ACTELION-A-NJ2011-51783

PATIENT

DRUGS (4)
  1. REVATIO [Concomitant]
  2. OXYGEN [Concomitant]
  3. COUMADIN [Concomitant]
  4. TRACLEER [Suspect]
     Indication: PULMONARY ARTERIAL HYPERTENSION
     Dosage: UNK
     Route: 048
     Dates: start: 20040617

REACTIONS (8)
  - CHRONIC OBSTRUCTIVE PULMONARY DISEASE [None]
  - ASTHMA [None]
  - PULMONARY ARTERIAL HYPERTENSION [None]
  - COUGH [None]
  - PNEUMONIA [None]
  - RESPIRATORY FAILURE [None]
  - CARDIAC FAILURE [None]
  - DYSPNOEA [None]
